FAERS Safety Report 5372491-3 (Version None)
Quarter: 2007Q2

REPORT INFORMATION
  Report Type: 
  Country: None (occurrence: None)
  Receive Date: 20070620
  Receipt Date: 20070508
  Transmission Date: 20071010
  Serious: No
  Sender: FDA-Public Use
  Company Number: 2007RL000202

PATIENT
  Age: 68 Year
  Sex: Male
  Weight: 82.5547 kg

DRUGS (4)
  1. OMACOR [Suspect]
     Indication: HIGH DENSITY LIPOPROTEIN INCREASED
     Dosage: 4 GM; QD; PO; 4 GM; QD; PO
     Route: 048
     Dates: start: 20050101, end: 20060101
  2. OMACOR [Suspect]
     Indication: HIGH DENSITY LIPOPROTEIN INCREASED
     Dosage: 4 GM; QD; PO; 4 GM; QD; PO
     Route: 048
     Dates: start: 20060101
  3. DIOVAN /01319601/ [Concomitant]
  4. ADVICOR [Concomitant]

REACTIONS (5)
  - GRIP STRENGTH DECREASED [None]
  - MUSCLE SPASMS [None]
  - OFF LABEL USE [None]
  - PAIN [None]
  - TREATMENT NONCOMPLIANCE [None]
